FAERS Safety Report 9625060 (Version 1)
Quarter: 2013Q4

REPORT INFORMATION
  Report Type: Spontaneous
  Country: US (occurrence: US)
  Receive Date: 20131016
  Receipt Date: 20131016
  Transmission Date: 20140711
  Serious: No
  Sender: FDA-Public Use
  Company Number: US-009507513-1310USA004665

PATIENT
  Sex: Female
  Weight: 68.93 kg

DRUGS (9)
  1. SINGULAIR [Suspect]
     Dosage: UNK
     Route: 048
  2. ZOCOR [Concomitant]
     Dosage: 20 MG, QD
     Route: 048
  3. LASIX (FUROSEMIDE SODIUM) [Concomitant]
     Dosage: 20 MG, QD
     Route: 048
  4. SYNTHROID [Concomitant]
     Dosage: 75 MICROGRAM, QD
     Route: 048
  5. CELEBREX [Concomitant]
     Dosage: 200 MG, QD
     Route: 048
  6. ATENOLOL [Concomitant]
     Dosage: 25 MG, QD
     Route: 048
  7. LIDODERM [Concomitant]
     Dosage: PATCH TOP
  8. PERCOCET [Concomitant]
     Dosage: UNK, PRN
     Route: 048
  9. ZOLOFT [Suspect]

REACTIONS (1)
  - Dizziness [Unknown]
